FAERS Safety Report 7939737-6 (Version None)
Quarter: 2011Q4

REPORT INFORMATION
  Report Type: 
  Country: None (occurrence: None)
  Receive Date: 20111125
  Receipt Date: 20111118
  Transmission Date: 20120403
  Serious: Yes (Other)
  Sender: FDA-Public Use
  Company Number: PHHY2011CA101062

PATIENT
  Sex: Female

DRUGS (3)
  1. REMICADE [Concomitant]
  2. ZOLEDRONOC ACID [Suspect]
     Indication: OSTEOPOROSIS
     Dosage: 5 MG, UNK
     Route: 042
     Dates: start: 20090928
  3. ZOLEDRONOC ACID [Suspect]
     Dosage: 5 MG, UNK
     Route: 042
     Dates: start: 20101004

REACTIONS (2)
  - POOR VENOUS ACCESS [None]
  - HAEMOGLOBIN DECREASED [None]
